FAERS Safety Report 23360307 (Version 4)
Quarter: 2024Q3

REPORT INFORMATION
  Report Type: Spontaneous
  Country: GB (occurrence: GB)
  Receive Date: 20240103
  Receipt Date: 20240720
  Transmission Date: 20241017
  Serious: Yes (Other)
  Sender: CELLTRION
  Company Number: GB-CELLTRION INC.-2023GB024612

PATIENT

DRUGS (10)
  1. INFLIXIMAB [Suspect]
     Active Substance: INFLIXIMAB
     Indication: Crohn^s disease
     Dosage: 290 MG, 6 WEEKLY
     Route: 042
  2. INFLIXIMAB [Suspect]
     Active Substance: INFLIXIMAB
     Dosage: 290 MG, 6 WEEKLY
     Route: 042
     Dates: end: 20240110
  3. INFLIXIMAB [Suspect]
     Active Substance: INFLIXIMAB
     Dosage: 290 MG, 6 WEEKLY
     Route: 042
  4. INFLIXIMAB [Suspect]
     Active Substance: INFLIXIMAB
     Dosage: 290 MG, 6 WEEKLY
     Route: 042
  5. SODIUM CHLORIDE [Suspect]
     Active Substance: SODIUM CHLORIDE
     Indication: Medication dilution
     Dosage: AT AN UNSPECIFIED DOSE 6 WEEKLY
     Route: 042
     Dates: end: 20240110
  6. SODIUM CHLORIDE [Suspect]
     Active Substance: SODIUM CHLORIDE
     Dosage: AT AN UNSPECIFIED DOSE 6 WEEKLY
     Route: 042
  7. SODIUM CHLORIDE [Suspect]
     Active Substance: SODIUM CHLORIDE
     Dosage: AT AN UNSPECIFIED DOSE 6 WEEKLY
     Route: 042
  8. WATER FOR INJECTION [Suspect]
     Active Substance: WATER
     Indication: Medication dilution
     Dosage: AT AN UNSPECIFIED DOSE 6 WEEKLY
     Route: 042
     Dates: end: 20240110
  9. WATER FOR INJECTION [Suspect]
     Active Substance: WATER
     Dosage: AT AN UNSPECIFIED DOSE 6 WEEKLY
     Route: 042
  10. WATER FOR INJECTION [Suspect]
     Active Substance: WATER
     Dosage: AT AN UNSPECIFIED DOSE 6 WEEKLY
     Route: 042

REACTIONS (15)
  - Sinonasal obstruction [Recovered/Resolved]
  - Lower respiratory tract infection [Unknown]
  - Blood test abnormal [Not Recovered/Not Resolved]
  - Frequent bowel movements [Recovered/Resolved]
  - Flatulence [Unknown]
  - Urinary tract infection [Recovered/Resolved]
  - Cough [Recovered/Resolved]
  - Nasopharyngitis [Recovered/Resolved]
  - Abdominal pain [Unknown]
  - Fatigue [Recovering/Resolving]
  - Nasopharyngitis [Recovered/Resolved]
  - Headache [Recovered/Resolved]
  - Cough [Recovered/Resolved]
  - Product dose omission issue [Unknown]
  - Treatment delayed [Recovered/Resolved]

NARRATIVE: CASE EVENT DATE: 20240430
